FAERS Safety Report 7646485-9 (Version None)
Quarter: 2011Q3

REPORT INFORMATION
  Report Type: 
  Country: None (occurrence: None)
  Receive Date: 20110801
  Receipt Date: 20110725
  Transmission Date: 20111222
  Serious: Yes (Other)
  Sender: FDA-Public Use
  Company Number: US-BAYER-201041609NA

PATIENT
  Age: 32 Year
  Sex: Female
  Weight: 58.957 kg

DRUGS (3)
  1. IRON SUPPLEMENT [Concomitant]
     Indication: IRON DEFICIENCY
     Dosage: 28 MG, QD
  2. YASMIN [Suspect]
     Indication: CONTRACEPTION
     Dosage: UNK
     Route: 048
     Dates: start: 20010101, end: 20090101
  3. YAZ [Suspect]
     Indication: CONTRACEPTION
     Dosage: UNK
     Route: 048
     Dates: start: 20010101, end: 20090101

REACTIONS (1)
  - GALLBLADDER INJURY [None]
